FAERS Safety Report 7784933-4 (Version None)
Quarter: 2011Q3

REPORT INFORMATION
  Report Type: 
  Country: None (occurrence: None)
  Receive Date: 20110928
  Receipt Date: 20110920
  Transmission Date: 20111222
  Serious: Yes (Other)
  Sender: FDA-Public Use
  Company Number: US-BAYER-2011-069879

PATIENT
  Age: 35 Year
  Sex: Female
  Weight: 61.678 kg

DRUGS (3)
  1. ZOLOFT [Concomitant]
     Dosage: 50 MG, QD
     Route: 048
  2. MIRENA [Suspect]
     Indication: CONTRACEPTION
     Dosage: 20 MCG/24HR, CONT
     Route: 015
     Dates: start: 20110719, end: 20110803
  3. ALBUTEROL [Concomitant]
     Dosage: UNK UNK, PRN

REACTIONS (2)
  - VAGINAL HAEMORRHAGE [None]
  - DEVICE EXPULSION [None]
